FAERS Safety Report 6861168-0 (Version None)
Quarter: 2010Q3

REPORT INFORMATION
  Report Type: 
  Country: None (occurrence: None)
  Receive Date: 20100720
  Receipt Date: 20100708
  Transmission Date: 20110219
  Serious: Yes (Other)
  Sender: FDA-Public Use
  Company Number: US-PFIZER INC-2010085992

PATIENT
  Sex: Female
  Weight: 54.875 kg

DRUGS (4)
  1. TOVIAZ [Suspect]
     Indication: HYPERTONIC BLADDER
     Dosage: 4 MG, UNK
     Route: 048
     Dates: start: 20100301, end: 20100301
  2. LEVOTHYROXINE SODIUM [Concomitant]
     Indication: THYROID DISORDER
     Dosage: 0.05 UG, 1X/DAY
  3. EVISTA [Concomitant]
     Indication: OSTEOPOROSIS
     Dosage: 60 MG, 1X/DAY
     Route: 048
  4. ZOLOFT [Concomitant]
     Indication: SLEEP DISORDER
     Dosage: 50 MG, 1X/DAY
     Route: 048

REACTIONS (1)
  - NERVOUSNESS [None]
